FAERS Safety Report 5117089-7 (Version None)
Quarter: 2006Q3

REPORT INFORMATION
  Report Type: 
  Country: None (occurrence: None)
  Receive Date: 20060925
  Receipt Date: 20060911
  Transmission Date: 20061208
  Serious: Yes (Hospitalization, Other)
  Sender: FDA-Public Use
  Company Number: 2006098332

PATIENT
  Age: 56 Year
  Sex: Male
  Weight: 100 kg

DRUGS (26)
  1. NEURONTIN [Suspect]
     Indication: PAIN
     Dosage: 900 MG (300 MG, 3 IN 1 D), ORAL
     Route: 048
     Dates: end: 20020101
  2. INSULIN MIXTARD                 (INSULIN INJECTION, ISOPHANE) [Concomitant]
  3. INSULIN              (INSULIN) [Concomitant]
  4. INDERAL [Concomitant]
  5. LOSEC   (OMEPRAZOLE) [Concomitant]
  6. ALDAZINE             (THIORIDAZINE HYDROCHLORIDE ) [Concomitant]
  7. ALL OTHER THERAPEUTIC PRODUCTS [Concomitant]
  8. SELEKTINE                    (PRAVASTATIN SODIUM) [Concomitant]
  9. MOLSIDOMIN         (MOLSIDOMINE) [Concomitant]
  10. CLONAZEPAM [Concomitant]
  11. ASAFLOW               (ACETYLSACLICYLIC ACID) [Concomitant]
  12. BUSCAPINE                      (HYOSCINE BUTYLBROMIDE) [Concomitant]
  13. NITROLINGUAL                (GLYCERYL TRINITRATE) [Concomitant]
  14. CEDOCARD                 (ISOSORBIDE DINITRATE) [Concomitant]
  15. PSYLLIUM HYDROPHILIC MUCILLOID              (PSYLLIUM HYDROPHILIC MUCI [Concomitant]
  16. DUPHALAC [Concomitant]
  17. LEXOTANIL           (BROMAZEPAM) [Concomitant]
  18. MICONAZOLE [Concomitant]
  19. HYDROCORTISONE [Concomitant]
  20. FUCIDINE CAP [Concomitant]
  21. CLOTRIMAZOLE [Concomitant]
  22. FURACINE       (NITROFURAL) [Concomitant]
  23. RUSCUS ACULEATUS                    (RUSCUS ACULEATUS) [Concomitant]
  24. ZYRTEC [Concomitant]
  25. MORPHINE [Concomitant]
  26. OXYGEN (OXYGEN) [Concomitant]

REACTIONS (4)
  - COMA [None]
  - FAECES DISCOLOURED [None]
  - HEPATIC FUNCTION ABNORMAL [None]
  - JAUNDICE [None]
